FAERS Safety Report 6143027-4 (Version None)
Quarter: 2009Q2

REPORT INFORMATION
  Report Type: 
  Country: None (occurrence: None)
  Receive Date: 20090403
  Receipt Date: 20090402
  Transmission Date: 20091009
  Serious: Yes (Other)
  Sender: FDA-Public Use
  Company Number: CA-ROXANE LABORATORIES, INC.-2009-RO-00329RO

PATIENT
  Age: 50 Year
  Sex: Female

DRUGS (9)
  1. MYCOPHENOLATE MOFETIL [Suspect]
     Indication: PROPHYLAXIS AGAINST TRANSPLANT REJECTION
     Dates: end: 20070201
  2. MYCOPHENOLATE MOFETIL [Suspect]
     Indication: SYSTEMIC SCLEROSIS
  3. PREDNISONE [Suspect]
     Indication: PROPHYLAXIS AGAINST TRANSPLANT REJECTION
     Dosage: 5MG
  4. PREDNISONE [Suspect]
     Indication: SYSTEMIC SCLEROSIS
     Dosage: 10MG
     Dates: start: 20060701
  5. PREDNISONE [Suspect]
     Dosage: 5MG
  6. TACROLIMUS [Suspect]
     Indication: PROPHYLAXIS AGAINST TRANSPLANT REJECTION
     Dates: end: 20060201
  7. SIROLIMUS [Suspect]
     Indication: IMMUNOSUPPRESSANT DRUG THERAPY
     Dates: start: 20070201
  8. ACE INHIBITOR [Suspect]
     Indication: SCLERODERMA RENAL CRISIS
  9. ENALAPRIL [Concomitant]

REACTIONS (4)
  - BOWENOID PAPULOSIS [None]
  - DRUG INEFFECTIVE [None]
  - SCLERODERMA RENAL CRISIS [None]
  - SQUAMOUS CELL CARCINOMA [None]
